FAERS Safety Report 6913486-5 (Version None)
Quarter: 2010Q3

REPORT INFORMATION
  Report Type: 
  Country: None (occurrence: None)
  Receive Date: 20100805
  Receipt Date: 20100805
  Transmission Date: 20110219
  Serious: Yes (Other)
  Sender: FDA-Public Use
  Company Number: None

PATIENT
  Age: 2 Year
  Sex: Female

DRUGS (1)
  1. SCOPE MOUTHWASH, ORIGINAL MINT FLAVOR LIQUID(WATER, ALCOHOL(15% W/W), [Suspect]
     Dosage: 11 OUNCES 1 ONLY ORAL
     Route: 048
     Dates: start: 20100623

REACTIONS (4)
  - ACCIDENTAL DRUG INTAKE BY CHILD [None]
  - ASPIRATION [None]
  - LOSS OF CONSCIOUSNESS [None]
  - VOMITING [None]
